FAERS Safety Report 11909814 (Version 1)
Quarter: 2016Q1

REPORT INFORMATION
  Report Type: Spontaneous
  Country: US (occurrence: None)
  Receive Date: 20160111
  Receipt Date: 20160111
  Transmission Date: 20160526
  Serious: No
  Sender: FDA-Public Use
  Company Number: None

PATIENT
  Age: 53 Year
  Sex: Female

DRUGS (6)
  1. MULTIVITAMIN [Concomitant]
     Active Substance: VITAMINS
  2. LETROAZOLE [Concomitant]
  3. IBRANCE [Suspect]
     Active Substance: PALBOCICLIB
     Indication: BREAST CANCER
     Dosage: QD X 21, OFF 7
     Route: 048
     Dates: start: 20151118
  4. AMLODIPINE [Concomitant]
     Active Substance: AMLODIPINE BESYLATE
  5. LOSARTAN. [Concomitant]
     Active Substance: LOSARTAN
  6. CALCIUM WITH D [Concomitant]
     Active Substance: CALCIUM\VITAMIN D

REACTIONS (2)
  - Alopecia [None]
  - Abdominal pain upper [None]

NARRATIVE: CASE EVENT DATE: 201512
